FAERS Safety Report 6178115-X (Version None)
Quarter: 2009Q2

REPORT INFORMATION
  Report Type: 
  Country: None (occurrence: None)
  Receive Date: 20090504
  Receipt Date: 20090428
  Transmission Date: 20091009
  Serious: Yes (Death, Other)
  Sender: FDA-Public Use
  Company Number: US-CELGENEUS-163-21880-09030618

PATIENT
  Sex: Male

DRUGS (15)
  1. REVLIMID [Suspect]
     Indication: PLASMABLASTIC LYMPHOMA
     Route: 048
     Dates: start: 20090101, end: 20090101
  2. CYCLOPHOSPHAMIDE [Concomitant]
     Indication: DRUG USE FOR UNKNOWN INDICATION
     Route: 065
     Dates: start: 20081222
  3. CYCLOPHOSPHAMIDE [Concomitant]
     Route: 065
     Dates: start: 20081230
  4. CYCLOPHOSPHAMIDE [Concomitant]
     Route: 065
     Dates: start: 20090113
  5. CYCLOPHOSPHAMIDE [Concomitant]
     Route: 065
     Dates: start: 20090120
  6. DEXAMETHASONE TAB [Concomitant]
     Indication: DRUG USE FOR UNKNOWN INDICATION
     Route: 065
     Dates: start: 20081222
  7. DEXAMETHASONE TAB [Concomitant]
     Route: 065
     Dates: start: 20081230
  8. DEXAMETHASONE TAB [Concomitant]
     Route: 065
     Dates: start: 20090113
  9. DEXAMETHASONE TAB [Concomitant]
     Route: 065
     Dates: start: 20090120
  10. BORTEZOMIB [Concomitant]
     Indication: DRUG USE FOR UNKNOWN INDICATION
     Route: 065
     Dates: start: 20081222
  11. BORTEZOMIB [Concomitant]
     Route: 065
     Dates: start: 20081230
  12. BORTEZOMIB [Concomitant]
     Route: 065
     Dates: start: 20090102
  13. BORTEZOMIB [Concomitant]
     Route: 065
     Dates: start: 20090113
  14. BORTEZOMIB [Concomitant]
     Route: 065
     Dates: start: 20090119
  15. BORTEZOMIB [Concomitant]
     Route: 065
     Dates: start: 20090120

REACTIONS (2)
  - NEUTROPENIA [None]
  - PSEUDOMONAL SEPSIS [None]
